FAERS Safety Report 8618136-8 (Version None)
Quarter: 2012Q3

REPORT INFORMATION
  Report Type: 
  Country: None (occurrence: None)
  Receive Date: 20120824
  Receipt Date: 20120213
  Transmission Date: 20120928
  Serious: Yes (Other)
  Sender: FDA-Public Use
  Company Number: US-ASTRAZENECA-2011SE51533

PATIENT
  Age: 69 Year
  Sex: Male

DRUGS (2)
  1. SYMBICORT [Suspect]
     Route: 055
  2. FOUR DIFFERENT INHALERS [Concomitant]

REACTIONS (4)
  - HYPOXIA [None]
  - DIABETES MELLITUS [None]
  - MALAISE [None]
  - CATARACT [None]
